FAERS Safety Report 10145662 (Version 1)
Quarter: 2014Q2

REPORT INFORMATION
  Report Type: Spontaneous
  Country: US (occurrence: US)
  Receive Date: 20140501
  Receipt Date: 20140501
  Transmission Date: 20141212
  Serious: No
  Sender: FDA-Public Use
  Company Number: US-ABBVIE-14P-163-1189796-00

PATIENT
  Age: 69 Year
  Sex: Male
  Weight: 99.88 kg

DRUGS (14)
  1. CREON [Suspect]
     Indication: PANCREATIC INSUFFICIENCY
     Dosage: 1 WITH EACH MEAL AND SOMETIMES WITH SNACK
     Route: 048
     Dates: start: 2010
  2. GEMFIBROZIL [Concomitant]
     Indication: BLOOD TRIGLYCERIDES INCREASED
  3. LOVAZA [Concomitant]
     Indication: PRODUCT USED FOR UNKNOWN INDICATION
  4. ASPIRIN [Concomitant]
     Indication: ISCHAEMIC HEART DISEASE PROPHYLAXIS
  5. METFORMIN [Concomitant]
     Indication: DIABETES MELLITUS
  6. LANTUS [Concomitant]
     Indication: DIABETES MELLITUS
  7. NOVOLOG [Concomitant]
     Indication: DIABETES MELLITUS
  8. ALLOPURINOL [Concomitant]
     Indication: GOUT
  9. FUROSEMIDE [Concomitant]
     Indication: OEDEMA PERIPHERAL
  10. BENAZEPRIL [Concomitant]
     Indication: HYPERTENSION
  11. AMLODIPINE [Concomitant]
     Indication: HYPERTENSION
  12. VITAMIN E [Concomitant]
     Indication: VITAMIN SUPPLEMENTATION
  13. VITAMIN C [Concomitant]
     Indication: VITAMIN SUPPLEMENTATION
  14. VITAMIN D3 [Concomitant]
     Indication: VITAMIN SUPPLEMENTATION

REACTIONS (1)
  - Blood selenium increased [Not Recovered/Not Resolved]
